FAERS Safety Report 15853865 (Version 4)
Quarter: 2019Q3

REPORT INFORMATION
  Report Type: Spontaneous
  Country: US (occurrence: US)
  Receive Date: 20190122
  Receipt Date: 20190813
  Transmission Date: 20191004
  Serious: No
  Sender: FDA-Public Use
  Company Number: US-PFIZER INC-2019027903

PATIENT
  Age: 59 Year
  Sex: Male

DRUGS (7)
  1. DILANTIN [Suspect]
     Active Substance: PHENYTOIN
     Dosage: 3-4 A DAY WHEN HE NEEDED IF IT IS HOT
  2. DILANTIN [Suspect]
     Active Substance: PHENYTOIN
     Dosage: 200 MG, 2X/DAY [100 MG II CAPSULE PO BID (TWO TIMES A DAY)]
     Route: 048
  3. LORAZEPAM. [Concomitant]
     Active Substance: LORAZEPAM
     Indication: SEIZURE
     Dosage: 1 MG, AS NEEDED
  4. DILANTIN [Suspect]
     Active Substance: PHENYTOIN
     Indication: SEIZURE
     Dosage: 3 DF, DAILY
     Dates: start: 1988
  5. DILANTIN [Suspect]
     Active Substance: PHENYTOIN
     Dosage: 5 DF (RAISED IT TO 5 DILANTIN OVER THE YEARS)
  6. DILANTIN [Suspect]
     Active Substance: PHENYTOIN
     Dosage: 100 MG, UNK
  7. LORAZEPAM. [Concomitant]
     Active Substance: LORAZEPAM
     Dosage: UNK [1 TO 4 MG]

REACTIONS (1)
  - Urinary tract disorder [Recovering/Resolving]

NARRATIVE: CASE EVENT DATE: 2016
